FAERS Safety Report 19893019 (Version 3)
Quarter: 2025Q4

REPORT INFORMATION
  Report Type: Spontaneous
  Country: US (occurrence: US)
  Receive Date: 20210928
  Receipt Date: 20251013
  Transmission Date: 20260117
  Serious: No
  Sender: SANOFI AVENTIS
  Company Number: US-SA-SAC20210922001108

PATIENT
  Age: 20 Year
  Sex: Female

DRUGS (2)
  1. DUPIXENT [Suspect]
     Active Substance: DUPILUMAB
     Indication: Product used for unknown indication
     Dosage: 300 MG, QOW
     Route: 058
     Dates: start: 20210721
  2. ELIDEL [Concomitant]
     Active Substance: PIMECROLIMUS

REACTIONS (6)
  - Skin swelling [Unknown]
  - Ocular hyperaemia [Unknown]
  - Lacrimation increased [Unknown]
  - Eye pruritus [Unknown]
  - Conjunctivitis allergic [Unknown]
  - Rash [Unknown]

NARRATIVE: CASE EVENT DATE: 20210911
